FAERS Safety Report 4482941-2 (Version None)
Quarter: 2004Q4

REPORT INFORMATION
  Report Type: 
  Country: None (occurrence: None)
  Receive Date: 20041022
  Receipt Date: 20041006
  Transmission Date: 20050328
  Serious: Yes (Hospitalization)
  Sender: FDA-Public Use
  Company Number: US-MERCK-0410USA01033

PATIENT
  Age: 65 Year
  Sex: Female

DRUGS (7)
  1. VIOXX [Suspect]
     Indication: ARTHRITIS
     Route: 048
     Dates: start: 20040301
  2. TENORMIN [Concomitant]
     Route: 065
  3. ZOCOR [Concomitant]
     Route: 065
  4. PREMARIN [Concomitant]
     Route: 065
  5. LOPID [Concomitant]
     Route: 065
  6. ASPIRIN [Suspect]
     Route: 065
  7. XANAX [Suspect]
     Route: 065

REACTIONS (6)
  - CEREBRAL INFARCTION [None]
  - CEREBROVASCULAR ACCIDENT [None]
  - CONFUSIONAL STATE [None]
  - DRUG WITHDRAWAL SYNDROME [None]
  - PYREXIA [None]
  - VIRAL INFECTION [None]
